FAERS Safety Report 24892605 (Version 3)
Quarter: 2025Q4

REPORT INFORMATION
  Report Type: Report from Study
  Country: US (occurrence: US)
  Receive Date: 20250128
  Receipt Date: 20251008
  Transmission Date: 20260118
  Serious: Yes (Other)
  Sender: UCB
  Company Number: US-UCBSA-2024056775

PATIENT
  Age: 2 Year
  Sex: Male
  Weight: 20.1 kg

DRUGS (10)
  1. FINTEPLA [Suspect]
     Active Substance: FENFLURAMINE
     Indication: Severe myoclonic epilepsy of infancy
     Dosage: 2.8 MILLILITER, 2X/DAY (BID)
     Dates: start: 20230210
  2. FINTEPLA [Suspect]
     Active Substance: FENFLURAMINE
     Dosage: 2.8 MILLILITER, 2X/DAY (BID) (EXPIRED PRODUCT ADMINISTERED)
     Dates: start: 2023
  3. FINTEPLA [Suspect]
     Active Substance: FENFLURAMINE
     Dosage: 2.8 MILLILITER, 2X/DAY (BID)
  4. FINTEPLA [Suspect]
     Active Substance: FENFLURAMINE
     Dosage: 1.2 ML IN MORNING AND 1.6 ML AT NIGHT
  5. FINTEPLA [Suspect]
     Active Substance: FENFLURAMINE
     Dosage: 5.6 MILLILITER, ONCE DAILY (QD)
  6. DEPAKOTE [Concomitant]
     Active Substance: DIVALPROEX SODIUM
     Indication: Epilepsy
     Dosage: 8 MILLILITER, 2X/DAY (BID)
  7. ONFI [Concomitant]
     Active Substance: CLOBAZAM
     Indication: Epilepsy
     Dosage: 1 TABLET AT MORNING 2 TABLET AT NIGHT
  8. VALTOCO [Concomitant]
     Active Substance: DIAZEPAM
     Indication: Product used for unknown indication
  9. MELATONIN [Concomitant]
     Active Substance: MELATONIN
     Indication: Sleep disorder
  10. CLONAZEPAM [Concomitant]
     Active Substance: CLONAZEPAM
     Indication: Product used for unknown indication

REACTIONS (6)
  - Seizure [Not Recovered/Not Resolved]
  - Haematochezia [Unknown]
  - Vagal nerve stimulator implantation [Unknown]
  - Sleep disorder [Unknown]
  - Constipation [Unknown]
  - Expired product administered [Unknown]

NARRATIVE: CASE EVENT DATE: 20230502
